FAERS Safety Report 21624263 (Version 1)
Quarter: 2022Q4

REPORT INFORMATION
  Report Type: Spontaneous
  Country: US (occurrence: US)
  Receive Date: 20221121
  Receipt Date: 20221121
  Transmission Date: 20230113
  Serious: Yes (Life-Threatening, Hospitalization, Other)
  Sender: FDA-Public Use
  Company Number: US-PRINSTON PHARMACEUTICAL INC.-2022PRN00421

PATIENT
  Age: 57 Year
  Sex: Male

DRUGS (3)
  1. BENAZEPRIL HYDROCHLORIDE [Suspect]
     Active Substance: BENAZEPRIL HYDROCHLORIDE
     Dosage: 20 TABLETS
     Route: 048
  2. AMLODIPINE [Suspect]
     Active Substance: AMLODIPINE BESYLATE
     Dosage: 20 TABLETS
     Route: 048
  3. GABAPENTIN [Suspect]
     Active Substance: GABAPENTIN
     Dosage: 10 TABLETS
     Route: 048

REACTIONS (8)
  - Shock [Recovered/Resolved]
  - Suicide attempt [Recovered/Resolved]
  - Lactic acidosis [Recovered/Resolved]
  - Renal impairment [Recovered/Resolved]
  - Cardiac arrest [Recovered/Resolved]
  - Mini-tracheostomy [Recovered/Resolved]
  - Hyperglycaemia [Recovered/Resolved]
  - Acute respiratory distress syndrome [Recovered/Resolved]
